FAERS Safety Report 4975568-7 (Version None)
Quarter: 2006Q2

REPORT INFORMATION
  Report Type: 
  Country: None (occurrence: None)
  Receive Date: 20060410
  Receipt Date: 20060330
  Transmission Date: 20061013
  Serious: Yes (Life-Threatening)
  Sender: FDA-Public Use
  Company Number: DEU-2006-0002104

PATIENT
  Age: 89 Year
  Sex: Male

DRUGS (2)
  1. PALLADONE [Suspect]
     Indication: POST HERPETIC NEURALGIA
     Dosage: 8 MG, QID, ORAL
     Route: 048
     Dates: end: 20060126
  2. NEURONTIN [Suspect]
     Indication: POST HERPETIC NEURALGIA
     Dosage: 600 MG, QID, ORAL
     Route: 048
     Dates: end: 20060126

REACTIONS (5)
  - CHEYNE-STOKES RESPIRATION [None]
  - EYE MOVEMENT DISORDER [None]
  - PUPIL FIXED [None]
  - SIMPLE PARTIAL SEIZURES [None]
  - SOMNOLENCE [None]
